FAERS Safety Report 25883389 (Version 1)
Quarter: 2025Q4

REPORT INFORMATION
  Report Type: Report from Study
  Country: US (occurrence: US)
  Receive Date: 20251006
  Receipt Date: 20251006
  Transmission Date: 20260117
  Serious: Yes (Other)
  Sender: JOHNSON AND JOHNSON
  Company Number: US-JNJFOC-20250943704

PATIENT
  Age: 6 Decade
  Sex: Male

DRUGS (2)
  1. SPRAVATO [Suspect]
     Active Substance: ESKETAMINE
     Indication: Depression
     Dosage: ^84 MG, 6 TOTAL DOSES^
     Route: 045
     Dates: start: 20250904, end: 20250925
  2. SPRAVATO [Suspect]
     Active Substance: ESKETAMINE
     Dosage: ^56 MG, 1 TOTAL DOSE^, ALSO CONFLICTINGLY START DATE WAS REPORTED AS 02-SEP-2025
     Route: 045
     Dates: start: 20250903, end: 20250903

REACTIONS (2)
  - Suicidal ideation [Recovered/Resolved]
  - Trance [Unknown]

NARRATIVE: CASE EVENT DATE: 20250901
